FAERS Safety Report 7844991-5 (Version None)
Quarter: 2011Q4

REPORT INFORMATION
  Report Type: 
  Country: None (occurrence: None)
  Receive Date: 20111017
  Receipt Date: 20111011
  Transmission Date: 20120403
  Serious: Yes (Other)
  Sender: FDA-Public Use
  Company Number: 2011SP027790

PATIENT
  Age: 24 Year
  Sex: Female
  Weight: 46.2669 kg

DRUGS (2)
  1. OXYGEN [Concomitant]
  2. IMPLANON [Suspect]
     Indication: CONTRACEPTION
     Dosage: 1 DF; ;SBDE
     Dates: start: 20101021

REACTIONS (5)
  - VAGINAL INFECTION [None]
  - VULVOVAGINAL MYCOTIC INFECTION [None]
  - VAGINAL HAEMORRHAGE [None]
  - SUICIDAL IDEATION [None]
  - DEPRESSION [None]
